FAERS Safety Report 16591320 (Version 3)
Quarter: 2019Q3

REPORT INFORMATION
  Report Type: Spontaneous
  Country: US (occurrence: US)
  Receive Date: 20190718
  Receipt Date: 20190923
  Transmission Date: 20191004
  Serious: Yes (Disabling)
  Sender: FDA-Public Use
  Company Number: US-PFIZER INC-2019301011

PATIENT
  Age: 59 Year
  Sex: Female

DRUGS (1)
  1. FLECTOR [Suspect]
     Active Substance: DICLOFENAC EPOLAMINE
     Dosage: UNK

REACTIONS (3)
  - Expired product administered [Unknown]
  - Muscle disorder [Unknown]
  - Peripheral vascular disorder [Unknown]
